FAERS Safety Report 5959908-8 (Version None)
Quarter: 2008Q4

REPORT INFORMATION
  Report Type: 
  Country: None (occurrence: None)
  Receive Date: 20081112
  Receipt Date: 20080624
  Transmission Date: 20090506
  Serious: Yes (Hospitalization)
  Sender: FDA-Public Use
  Company Number: US-JNJFOC-20080606452

PATIENT
  Age: 30 Year
  Sex: Female

DRUGS (10)
  1. MOTRIN [Suspect]
     Indication: DRUG USE FOR UNKNOWN INDICATION
  2. NEURONTIN [Concomitant]
  3. VALIUM [Concomitant]
  4. PERCOCET [Concomitant]
  5. XYZAL [Concomitant]
  6. BACLOFEN [Concomitant]
  7. NEXIUM [Concomitant]
  8. ADDERALL (OBETROL) [Concomitant]
  9. LASIX [Concomitant]
  10. PENICILLIN (BENZYLPENICILLIN SODIUM) [Concomitant]

REACTIONS (1)
  - HAEMORRHAGE [None]
